FAERS Safety Report 21552779 (Version 2)
Quarter: 2022Q4

REPORT INFORMATION
  Report Type: Report from Study
  Country: US (occurrence: US)
  Receive Date: 20221104
  Receipt Date: 20221217
  Transmission Date: 20230113
  Serious: No
  Sender: FDA-Public Use
  Company Number: US-ABBVIE-4140420

PATIENT
  Age: 65 Year
  Sex: Male

DRUGS (2)
  1. RINVOQ [Suspect]
     Active Substance: UPADACITINIB
     Indication: Rheumatoid arthritis
     Dosage: 15 MILLIGRAM
     Route: 048
     Dates: start: 202108
  2. RINVOQ [Suspect]
     Active Substance: UPADACITINIB
     Indication: Rheumatoid arthritis
     Route: 048
     Dates: start: 202108

REACTIONS (5)
  - Musculoskeletal stiffness [Unknown]
  - Rotator cuff syndrome [Unknown]
  - Rheumatoid arthritis [Unknown]
  - Pain [Unknown]
  - Tendon rupture [Unknown]

NARRATIVE: CASE EVENT DATE: 20220927
